FAERS Safety Report 9716522 (Version 1)
Quarter: 2013Q4

REPORT INFORMATION
  Report Type: Spontaneous
  Country: US (occurrence: None)
  Receive Date: 20131126
  Receipt Date: 20131126
  Transmission Date: 20140711
  Serious: Yes (Other)
  Sender: FDA-Public Use
  Company Number: None

PATIENT
  Age: 37 Year
  Sex: Female
  Weight: 65.77 kg

DRUGS (4)
  1. DYMISTA [Suspect]
     Indication: ALLERGIC RESPIRATORY SYMPTOM
     Dosage: 1 SPRAY; INTRANASAL
     Route: 045
     Dates: start: 20131119, end: 20131121
  2. DYMISTA [Suspect]
     Indication: NASAL CONGESTION
     Dosage: 1 SPRAY; INTRANASAL
     Route: 045
     Dates: start: 20131119, end: 20131121
  3. DYMISTA [Suspect]
     Indication: RHINORRHOEA
     Dosage: 1 SPRAY; INTRANASAL
     Route: 045
     Dates: start: 20131119, end: 20131121
  4. XYZAL [Concomitant]

REACTIONS (2)
  - Erythema [None]
  - Papule [None]
